FAERS Safety Report 10100460 (Version 4)
Quarter: 2014Q4

REPORT INFORMATION
  Report Type: Report from Study
  Country: JP (occurrence: JP)
  Receive Date: 20140423
  Receipt Date: 20141225
  Transmission Date: 20150528
  Serious: Yes (Hospitalization, Other)
  Sender: FDA-Public Use
  Company Number: PHHY2011JP103264

PATIENT
  Age: 46 Year
  Sex: Female
  Weight: 55 kg

DRUGS (61)
  1. CERTICAN [Suspect]
     Active Substance: EVEROLIMUS
     Dosage: 1.5 MG, QD
     Route: 048
     Dates: start: 20090911, end: 20090930
  2. CERTICAN [Suspect]
     Active Substance: EVEROLIMUS
     Dosage: 1.25 MG, QD
     Route: 048
     Dates: start: 20111020, end: 20111117
  3. PREDNISOLONE. [Suspect]
     Active Substance: PREDNISOLONE
     Indication: HEART TRANSPLANT
     Route: 065
  4. PROGRAF [Suspect]
     Active Substance: TACROLIMUS\TACROLIMUS ANHYDROUS
     Dosage: 3 MG, QD
     Route: 048
     Dates: start: 20121006, end: 20121008
  5. PROGRAF [Suspect]
     Active Substance: TACROLIMUS\TACROLIMUS ANHYDROUS
     Dosage: 4 MG, QD
     Route: 048
     Dates: start: 20121010, end: 20121026
  6. PROGRAF [Suspect]
     Active Substance: TACROLIMUS\TACROLIMUS ANHYDROUS
     Dosage: 3.4 MG, QD
     Route: 048
     Dates: start: 20121113, end: 20121115
  7. PROGRAF [Suspect]
     Active Substance: TACROLIMUS\TACROLIMUS ANHYDROUS
     Dosage: 3.2 MG, QD
     Route: 048
     Dates: start: 20121116, end: 20121121
  8. CELLCEPT [Concomitant]
     Active Substance: MYCOPHENOLATE MOFETIL\MYCOPHENOLATE MOFETIL HYDROCHLORIDE
     Indication: HEART TRANSPLANT
     Dosage: 1000 MG, UNK
     Route: 048
     Dates: start: 20080831
  9. CELLCEPT [Concomitant]
     Active Substance: MYCOPHENOLATE MOFETIL\MYCOPHENOLATE MOFETIL HYDROCHLORIDE
     Dosage: 1000 MG, UNK
     Route: 048
  10. CERTICAN [Suspect]
     Active Substance: EVEROLIMUS
     Dosage: 1.75 MG, QD
     Route: 048
     Dates: start: 20091001, end: 20091104
  11. PROGRAF [Suspect]
     Active Substance: TACROLIMUS\TACROLIMUS ANHYDROUS
     Dosage: 1.8 MG, QD
     Route: 048
     Dates: start: 20110429, end: 20110816
  12. FERROMIA [Concomitant]
     Active Substance: FERROUS CITRATE
     Indication: PRODUCT USED FOR UNKNOWN INDICATION
     Dosage: 50 MG, UNK
     Route: 048
     Dates: start: 20100203, end: 20110428
  13. BAKTAR [Concomitant]
     Active Substance: SULFAMETHOXAZOLE\TRIMETHOPRIM
     Indication: PRODUCT USED FOR UNKNOWN INDICATION
     Route: 065
  14. PROGRAF [Suspect]
     Active Substance: TACROLIMUS\TACROLIMUS ANHYDROUS
     Dosage: 1.4 MG, QD
     Route: 048
     Dates: start: 20090911, end: 20091014
  15. CELLCEPT [Concomitant]
     Active Substance: MYCOPHENOLATE MOFETIL\MYCOPHENOLATE MOFETIL HYDROCHLORIDE
     Dosage: 1250 MG, UNK
     Route: 048
     Dates: end: 20121112
  16. CERTICAN [Suspect]
     Active Substance: EVEROLIMUS
     Dosage: 0.75 MG, QD
     Route: 048
     Dates: start: 20101007, end: 20101014
  17. CERTICAN [Suspect]
     Active Substance: EVEROLIMUS
     Dosage: 0.5 MG, QD
     Route: 048
     Dates: start: 20101015, end: 20110217
  18. CERTICAN [Suspect]
     Active Substance: EVEROLIMUS
     Dosage: 0.75 MG, QD
     Route: 048
     Dates: start: 20120609, end: 20120705
  19. PROGRAF [Suspect]
     Active Substance: TACROLIMUS\TACROLIMUS ANHYDROUS
     Dosage: 1.8 MG, QD
     Route: 048
     Dates: start: 20100917, end: 20101111
  20. PROGRAF [Suspect]
     Active Substance: TACROLIMUS\TACROLIMUS ANHYDROUS
     Dosage: 4.4 MG, QD
     Route: 048
     Dates: start: 20121027, end: 20121031
  21. AMLODIN [Concomitant]
     Active Substance: AMLODIPINE BESYLATE
     Indication: HYPERTENSION
     Dosage: 5 MG, UNK
     Route: 048
     Dates: start: 20080919
  22. LIPITOR [Concomitant]
     Active Substance: ATORVASTATIN CALCIUM
     Dosage: 10 MG, UNK
     Route: 048
  23. CERTICAN [Suspect]
     Active Substance: EVEROLIMUS
     Dosage: 1.5 MG, QD
     Route: 048
     Dates: start: 20091105, end: 20100203
  24. CERTICAN [Suspect]
     Active Substance: EVEROLIMUS
     Dosage: 1.25 MG, QD
     Route: 048
     Dates: start: 20100204, end: 20100803
  25. CERTICAN [Suspect]
     Active Substance: EVEROLIMUS
     Dosage: 1 MG, QD
     Route: 048
     Dates: start: 20100804, end: 20101006
  26. CERTICAN [Suspect]
     Active Substance: EVEROLIMUS
     Dosage: 1 MG,  QD
     Route: 048
     Dates: start: 20110922, end: 20111019
  27. CERTICAN [Suspect]
     Active Substance: EVEROLIMUS
     Dosage: 1.25 MG, QD
     Route: 048
     Dates: start: 20121109, end: 20121115
  28. CERTICAN [Suspect]
     Active Substance: EVEROLIMUS
     Dosage: 1 MG, QD
     Route: 048
     Dates: start: 20030531
  29. PROGRAF [Suspect]
     Active Substance: TACROLIMUS\TACROLIMUS ANHYDROUS
     Dosage: 1.6 MG, QD
     Route: 048
     Dates: start: 20101112, end: 20110428
  30. PROGRAF [Suspect]
     Active Substance: TACROLIMUS\TACROLIMUS ANHYDROUS
     Dosage: 2.2 MG, QD
     Route: 048
     Dates: start: 20120322, end: 20120607
  31. PROGRAF [Suspect]
     Active Substance: TACROLIMUS\TACROLIMUS ANHYDROUS
     Dosage: 2 MG, QD
     Route: 048
     Dates: start: 20120608, end: 20120830
  32. PREDONINE [Concomitant]
     Active Substance: PREDNISOLONE\PREDNISOLONE ACETATE\PREDNISOLONE SODIUM SUCCINATE
     Indication: HEART TRANSPLANT
     Dosage: 5 MG, UNK
     Route: 048
     Dates: start: 20080831
  33. LIPITOR [Concomitant]
     Active Substance: ATORVASTATIN CALCIUM
     Indication: HYPERLIPIDAEMIA
     Dosage: 5 MG, UNK
     Route: 048
     Dates: start: 20081002
  34. CERTICAN [Suspect]
     Active Substance: EVEROLIMUS
     Dosage: 1.25 MG, QD
     Route: 048
     Dates: start: 20090907, end: 20090910
  35. CERTICAN [Suspect]
     Active Substance: EVEROLIMUS
     Dosage: 0.75 MG, QD
     Route: 048
     Dates: start: 20110218, end: 20110324
  36. CERTICAN [Suspect]
     Active Substance: EVEROLIMUS
     Dosage: 1 MG, QD
     Route: 048
     Dates: start: 20110325, end: 20110406
  37. CERTICAN [Suspect]
     Active Substance: EVEROLIMUS
     Dosage: 1 MG, QD
     Route: 048
     Dates: start: 20111118, end: 20120608
  38. CERTICAN [Suspect]
     Active Substance: EVEROLIMUS
     Dosage: 1.25 MG, QD
     Route: 048
     Dates: start: 20130405, end: 20130530
  39. TACROLIMUS. [Suspect]
     Active Substance: TACROLIMUS
     Indication: HEART TRANSPLANT
     Route: 065
  40. PROGRAF [Suspect]
     Active Substance: TACROLIMUS\TACROLIMUS ANHYDROUS
     Dosage: 2 MG, QD
     Route: 048
     Dates: start: 20110817, end: 20120321
  41. PROGRAF [Suspect]
     Active Substance: TACROLIMUS\TACROLIMUS ANHYDROUS
     Dosage: 2.2 MG, QD
     Route: 048
     Dates: start: 20120831, end: 20121005
  42. PROGRAF [Suspect]
     Active Substance: TACROLIMUS\TACROLIMUS ANHYDROUS
     Dosage: 3.4 MG, QD
     Route: 048
     Dates: start: 20121009, end: 20121009
  43. PROGRAF [Suspect]
     Active Substance: TACROLIMUS\TACROLIMUS ANHYDROUS
     Dosage: 4 MG, QD
     Route: 048
     Dates: start: 20121101, end: 20121108
  44. AMLODIN [Concomitant]
     Active Substance: AMLODIPINE BESYLATE
     Dosage: 2.5 MG, UNK
     Route: 048
  45. CERTICAN [Suspect]
     Active Substance: EVEROLIMUS
     Indication: HEART TRANSPLANT
     Dosage: 1.5 MG, QD
     Route: 048
     Dates: start: 20090826, end: 20090902
  46. CERTICAN [Suspect]
     Active Substance: EVEROLIMUS
     Dosage: 1 MG, QD
     Route: 048
     Dates: start: 20090903, end: 20090906
  47. CERTICAN [Suspect]
     Active Substance: EVEROLIMUS
     Dosage: 0.75 MG, QD
     Route: 048
     Dates: start: 20110407, end: 20110921
  48. CERTICAN [Suspect]
     Active Substance: EVEROLIMUS
     Dosage: 1 MG, QD
     Route: 048
     Dates: start: 20120706, end: 20120927
  49. CERTICAN [Suspect]
     Active Substance: EVEROLIMUS
     Dosage: 1.25 MG, QD
     Route: 048
     Dates: start: 20120928, end: 20121002
  50. CERTICAN [Suspect]
     Active Substance: EVEROLIMUS
     Dosage: 1.5 MG, QD
     Route: 048
     Dates: start: 20121116, end: 20130404
  51. PROGRAF [Suspect]
     Active Substance: TACROLIMUS\TACROLIMUS ANHYDROUS
     Dosage: 2 MG, QD
     Route: 048
     Dates: start: 20100401, end: 20100916
  52. PROGRAF [Suspect]
     Active Substance: TACROLIMUS\TACROLIMUS ANHYDROUS
     Dosage: 3.7 MG, QD
     Route: 048
     Dates: start: 20121109, end: 20121112
  53. PROGRAF [Suspect]
     Active Substance: TACROLIMUS\TACROLIMUS ANHYDROUS
     Dosage: 2.4 MG, QD
     Route: 048
     Dates: start: 20130208, end: 20130307
  54. PROGRAF [Suspect]
     Active Substance: TACROLIMUS\TACROLIMUS ANHYDROUS
     Indication: HEART TRANSPLANT
     Dosage: 2 MG, QD
     Route: 048
     Dates: start: 20090625, end: 20090906
  55. PROGRAF [Suspect]
     Active Substance: TACROLIMUS\TACROLIMUS ANHYDROUS
     Dosage: 1.7 MG, QD
     Route: 048
     Dates: start: 20090907, end: 20090910
  56. PROGRAF [Suspect]
     Active Substance: TACROLIMUS\TACROLIMUS ANHYDROUS
     Dosage: 1.7 MG, QD
     Route: 048
     Dates: start: 20091015, end: 20100331
  57. PROGRAF [Suspect]
     Active Substance: TACROLIMUS\TACROLIMUS ANHYDROUS
     Dosage: 3 MG, QD
     Route: 048
     Dates: start: 20121122, end: 20130109
  58. PROGRAF [Suspect]
     Active Substance: TACROLIMUS\TACROLIMUS ANHYDROUS
     Dosage: 2.7 MG, QD
     Route: 048
     Dates: start: 20130110, end: 20130207
  59. PROGRAF [Suspect]
     Active Substance: TACROLIMUS\TACROLIMUS ANHYDROUS
     Dosage: 2.2 MG, QD
     Route: 048
     Dates: start: 20130308, end: 20130826
  60. PROGRAF [Suspect]
     Active Substance: TACROLIMUS\TACROLIMUS ANHYDROUS
     Dosage: 2.4 MG, QD
     Route: 048
     Dates: start: 20130827
  61. PREDONINE [Concomitant]
     Active Substance: PREDNISOLONE\PREDNISOLONE ACETATE\PREDNISOLONE SODIUM SUCCINATE
     Dosage: 2.5 MG, UNK
     Route: 048
     Dates: end: 20100916

REACTIONS (11)
  - Pyrexia [Recovered/Resolved]
  - Blood urine present [Unknown]
  - Coronary artery stenosis [Recovered/Resolved]
  - Blood pressure abnormal [Unknown]
  - Haemoglobin decreased [Unknown]
  - Blood cholesterol increased [Unknown]
  - Haematocrit decreased [Unknown]
  - Transplant rejection [Unknown]
  - Red blood cell count decreased [Unknown]
  - Immunosuppressant drug level increased [Unknown]
  - Blood triglycerides increased [Unknown]

NARRATIVE: CASE EVENT DATE: 20110322
